FAERS Safety Report 8091177-8 (Version None)
Quarter: 2012Q1

REPORT INFORMATION
  Report Type: 
  Country: None (occurrence: None)
  Receive Date: 20120130
  Receipt Date: 20120130
  Transmission Date: 20120608
  Serious: No
  Sender: FDA-Public Use
  Company Number: None

PATIENT
  Age: 70 Year
  Sex: Male
  Weight: 81.1 kg

DRUGS (1)
  1. SIMVASTATIN [Suspect]
     Dosage: 40 MG EVERY DAY PO
     Route: 048
     Dates: start: 20100222, end: 20110302

REACTIONS (4)
  - MYALGIA [None]
  - JOINT SWELLING [None]
  - TREMOR [None]
  - HEPATIC ENZYME ABNORMAL [None]
